FAERS Safety Report 4299291-X (Version None)
Quarter: 2004Q1

REPORT INFORMATION
  Report Type: 
  Country: None (occurrence: None)
  Receive Date: 20040217
  Receipt Date: 20040205
  Transmission Date: 20041129
  Serious: Yes (Hospitalization)
  Sender: FDA-Public Use
  Company Number: US065960

PATIENT
  Age: 82 Year
  Sex: Male
  Weight: 53.6 kg

DRUGS (6)
  1. PROCRIT [Suspect]
     Indication: ANAEMIA
     Dosage: 20000 U, 1 IN 1 WEEKS
  2. CLOPIDOGREL BISULFATE [Concomitant]
  3. MIRTAZAPINE [Concomitant]
  4. ALENDRONATE SODIUM [Concomitant]
  5. CLONAZEPAM [Concomitant]
  6. LEVOTHYROXINE SODIUM [Concomitant]

REACTIONS (3)
  - FALL [None]
  - HIP FRACTURE [None]
  - SKIN LACERATION [None]
